FAERS Safety Report 8903934 (Version 1)
Quarter: 2012Q4

REPORT INFORMATION
  Report Type: 
  Country: GB (occurrence: GB)
  Receive Date: 20121112
  Receipt Date: 20121112
  Transmission Date: 20130627
  Serious: Yes (Other)
  Sender: FDA-Public Use
  Company Number: GB-TEVA-367875ISR

PATIENT
  Sex: Male

DRUGS (2)
  1. TEGRETOL RETARD [Suspect]
     Indication: EPILEPSY
     Dosage: 1600 Milligram Daily;
  2. VALPROIC ACID [Suspect]
     Indication: EPILEPSY
     Dosage: 2200 Milligram Daily;

REACTIONS (1)
  - Chronic myeloid leukaemia [Unknown]
